FAERS Safety Report 4561309-4 (Version None)
Quarter: 2005Q1

REPORT INFORMATION
  Report Type: 
  Country: None (occurrence: None)
  Receive Date: 20050121
  Receipt Date: 20040318
  Transmission Date: 20050727
  Serious: No
  Sender: FDA-Public Use
  Company Number: A04200400256

PATIENT
  Age: 71 Year
  Sex: Male

DRUGS (8)
  1. ELOXATIN [Suspect]
     Indication: COLON CANCER
     Dosage: 49.01 MG/M2 OTHER INTRAVENOUS DRIP
     Route: 041
     Dates: start: 20040217, end: 20040217
  2. ELOXATIN [Suspect]
     Indication: METASTASES TO LIVER
     Dosage: 49.01 MG/M2 OTHER INTRAVENOUS DRIP
     Route: 041
     Dates: start: 20040217, end: 20040217
  3. FLUOROURACIL [Concomitant]
  4. LEUCOVORIN CALCIUM [Concomitant]
  5. ADALAT [Concomitant]
  6. SOTALOL HCL [Concomitant]
  7. ZOCOR [Concomitant]
  8. ACETYLSALICYLIC ACID SRT [Concomitant]

REACTIONS (2)
  - DIABETES MELLITUS [None]
  - DIABETIC KETOACIDOTIC HYPERGLYCAEMIC COMA [None]
